FAERS Safety Report 5963755-0 (Version None)
Quarter: 2008Q4

REPORT INFORMATION
  Report Type: 
  Country: None (occurrence: None)
  Receive Date: 20081121
  Receipt Date: 20081121
  Transmission Date: 20090506
  Serious: Yes (Life-Threatening, Other)
  Sender: FDA-Public Use
  Company Number: None

PATIENT
  Age: 50 Year
  Sex: Male
  Weight: 96.1626 kg

DRUGS (9)
  1. EXUBERA [Suspect]
     Indication: DIABETES MELLITUS
     Dosage: UD:3MG, 1MG (3 IN 1 D), INHALATION
     Route: 055
     Dates: start: 20070403, end: 20080623
  2. AVANDARYL (GLIMEPIRIDE, ROSIGLITAZONE MALEATE) [Concomitant]
  3. GLUCOPHAGE XR (METFORMIN HYDROCHLORIDE) [Concomitant]
  4. LANTUS [Concomitant]
  5. ZETIA [Concomitant]
  6. MICARDIS [Concomitant]
  7. WELCHOL [Concomitant]
  8. TRICOR [Concomitant]
  9. CRESTOR [Concomitant]

REACTIONS (3)
  - LUNG NEOPLASM MALIGNANT [None]
  - METASTASIS [None]
  - OROPHARYNGEAL PAIN [None]
